FAERS Safety Report 4917111-4 (Version None)
Quarter: 2006Q1

REPORT INFORMATION
  Report Type: 
  Country: None (occurrence: None)
  Receive Date: 20060221
  Receipt Date: 20051215
  Transmission Date: 20060701
  Serious: Yes (Hospitalization)
  Sender: FDA-Public Use
  Company Number: DE-BRISTOL-MYERS SQUIBB COMPANY-13216569

PATIENT
  Age: 74 Year
  Sex: Male

DRUGS (10)
  1. CETUXIMAB [Suspect]
     Indication: COLORECTAL CANCER
     Route: 042
     Dates: start: 20051206, end: 20051206
  2. IRINOTECAN [Suspect]
     Indication: COLORECTAL CANCER
     Dosage: DOSE INTERRUPTED THEN REDUCED PROPHYLACTICALLY.
     Route: 042
     Dates: start: 20051206, end: 20051206
  3. PHENPROCOUMON [Suspect]
     Route: 048
     Dates: start: 20040101, end: 20051214
  4. METOPROLOL SUCCINATE [Concomitant]
     Route: 048
     Dates: end: 20060102
  5. PANTOPRAZOLE [Concomitant]
     Route: 048
     Dates: end: 20060102
  6. FUROSEMIDE [Concomitant]
     Route: 048
     Dates: end: 20060102
  7. SPIRONOLACTONE [Concomitant]
     Route: 048
     Dates: end: 20060102
  8. DICLOFENAC SODIUM [Concomitant]
     Route: 048
     Dates: end: 20051212
  9. GRANISETRON [Concomitant]
     Route: 042
     Dates: start: 20051206, end: 20051206
  10. DEXAMETHASONE SODIUM PHOSPHATE [Concomitant]
     Route: 042
     Dates: start: 20051206, end: 20051206

REACTIONS (2)
  - COLITIS [None]
  - INFECTION [None]
